FAERS Safety Report 12388421 (Version 7)
Quarter: 2016Q3

REPORT INFORMATION
  Report Type: Report from Study
  Country: US (occurrence: US)
  Receive Date: 20160520
  Receipt Date: 20160912
  Transmission Date: 20161109
  Serious: Yes (Other)
  Sender: FDA-Public Use
  Company Number: US-GILEAD-2016-0214507

PATIENT
  Age: 71 Year
  Sex: Female

DRUGS (3)
  1. REMODULIN [Concomitant]
     Active Substance: TREPROSTINIL
  2. AMBRISENTAN [Suspect]
     Active Substance: AMBRISENTAN
     Indication: PRODUCT USED FOR UNKNOWN INDICATION
     Dosage: 5 MG, QD
     Route: 065
     Dates: start: 20160516
  3. ADCIRCA [Concomitant]
     Active Substance: TADALAFIL

REACTIONS (11)
  - Infusion site pain [Unknown]
  - Pulmonary arterial hypertension [Not Recovered/Not Resolved]
  - Diarrhoea [Unknown]
  - Infusion site erythema [Unknown]
  - Infusion site rash [Not Recovered/Not Resolved]
  - Application site discharge [Not Recovered/Not Resolved]
  - Catheter site inflammation [Unknown]
  - Fluid retention [Not Recovered/Not Resolved]
  - Oedema peripheral [Unknown]
  - Pain in jaw [Unknown]
  - Headache [Unknown]
